FAERS Safety Report 13218021 (Version 1)
Quarter: 2017Q1

REPORT INFORMATION
  Report Type: Other
  Country: US (occurrence: US)
  Receive Date: 20170210
  Receipt Date: 20170210
  Transmission Date: 20170428
  Serious: No
  Sender: FDA-Public Use
  Company Number: US-ACORDA-ACO_122523_2016

PATIENT
  Age: 60 Year
  Sex: Female

DRUGS (1)
  1. AMPYRA [Suspect]
     Active Substance: DALFAMPRIDINE
     Indication: MULTIPLE SCLEROSIS
     Dosage: 10 MG, BID
     Route: 048
     Dates: start: 20151127

REACTIONS (6)
  - Red blood cells urine [Unknown]
  - White blood cells urine positive [Unknown]
  - Escherichia urinary tract infection [Unknown]
  - Haemoglobin urine present [Unknown]
  - Urine leukocyte esterase positive [Unknown]
  - Protein urine present [Unknown]

NARRATIVE: CASE EVENT DATE: 20160315
